FAERS Safety Report 18691762 (Version 1)
Quarter: 2021Q1

REPORT INFORMATION
  Report Type: Spontaneous
  Country: US (occurrence: US)
  Receive Date: 20210102
  Receipt Date: 20210102
  Transmission Date: 20210419
  Serious: No
  Sender: FDA-Public Use
  Company Number: US-LUPIN PHARMACEUTICALS INC.-2020-08899

PATIENT
  Sex: Female
  Weight: 44.9 kg

DRUGS (2)
  1. NORGESTIMATE AND ETHINYL ESTRADIOL TABLETS USP 0.18 MG/0.035 MG [Suspect]
     Active Substance: ETHINYL ESTRADIOL\NORGESTIMATE
     Dosage: UNK
     Route: 048
     Dates: start: 20201101
  2. NORGESTIMATE AND ETHINYL ESTRADIOL TABLETS USP 0.18 MG/0.035 MG [Suspect]
     Active Substance: ETHINYL ESTRADIOL\NORGESTIMATE
     Indication: ORAL CONTRACEPTION
     Dosage: UNK
     Route: 048

REACTIONS (5)
  - Menstrual disorder [Not Recovered/Not Resolved]
  - Stress [Unknown]
  - Incorrect dose administered [Unknown]
  - Weight decreased [Unknown]
  - Dysmenorrhoea [Not Recovered/Not Resolved]
